FAERS Safety Report 5951319-4 (Version None)
Quarter: 2008Q4

REPORT INFORMATION
  Report Type: 
  Country: None (occurrence: None)
  Receive Date: 20081111
  Receipt Date: 20081111
  Transmission Date: 20090506
  Serious: Yes (Death, Life-Threatening, Hospitalization)
  Sender: FDA-Public Use
  Company Number: None

PATIENT
  Age: 57 Year
  Sex: Male
  Weight: 83 kg

DRUGS (13)
  1. TENECTEPLASE 50 MG GENENTECH [Suspect]
     Indication: ACUTE MYOCARDIAL INFARCTION
     Dosage: 40 MG BOLUS IV BOLUS
     Route: 040
     Dates: start: 20081004, end: 20081004
  2. EPTIFATIDE 2MG/ML SCHERING [Suspect]
     Indication: CHEST PAIN
     Dosage: 14.6MG BOLUS IV BOLUS
     Route: 040
     Dates: start: 20081004, end: 20081004
  3. EPTIFATIDE 2MG/ML SCHERING [Suspect]
     Indication: THROMBOSIS
     Dosage: 14.6MG BOLUS IV BOLUS
     Route: 040
     Dates: start: 20081004, end: 20081004
  4. TOPROL-XL [Concomitant]
  5. ASPIRIN [Concomitant]
  6. CHOLESTEROL MED [Concomitant]
  7. AMBIEN [Concomitant]
  8. CHANTIX [Concomitant]
  9. PLAVIX [Concomitant]
  10. LOPRESSOR [Concomitant]
  11. NITROGLYERIN [Concomitant]
  12. VALIUM [Concomitant]
  13. MOTRIN [Concomitant]

REACTIONS (3)
  - CEREBRAL HAEMORRHAGE [None]
  - CEREBROVASCULAR ACCIDENT [None]
  - CHEST PAIN [None]
